FAERS Safety Report 17758374 (Version 4)
Quarter: 2020Q3

REPORT INFORMATION
  Report Type: Report from Study
  Country: US (occurrence: US)
  Receive Date: 20200507
  Receipt Date: 20200723
  Transmission Date: 20201102
  Serious: Yes (Hospitalization, Other)
  Sender: FDA-Public Use
  Company Number: US-GILEAD-2020-0463579

PATIENT
  Age: 35 Year
  Sex: Female
  Weight: 61.6 kg

DRUGS (13)
  1. AMBRISENTAN [Suspect]
     Active Substance: AMBRISENTAN
     Indication: PULMONARY HYPERTENSION
     Dosage: 5 MG, QD
     Route: 065
     Dates: start: 20200504
  2. HYDRALAZINE [Concomitant]
     Active Substance: HYDRALAZINE HYDROCHLORIDE
  3. AMBRISENTAN [Suspect]
     Active Substance: AMBRISENTAN
     Indication: END STAGE RENAL DISEASE
  4. LOSARTAN. [Concomitant]
     Active Substance: LOSARTAN
  5. TIVICAY [Concomitant]
     Active Substance: DOLUTEGRAVIR SODIUM
  6. AMBRISENTAN [Suspect]
     Active Substance: AMBRISENTAN
     Indication: HIV INFECTION
     Dosage: 10 MG
     Route: 065
  7. SILDENAFIL. [Concomitant]
     Active Substance: SILDENAFIL
  8. METOPROLOL. [Concomitant]
     Active Substance: METOPROLOL
  9. ABACAVIR. [Concomitant]
     Active Substance: ABACAVIR
  10. LAMIVUDINE. [Concomitant]
     Active Substance: LAMIVUDINE
  11. PANTOPRAZOLE [Concomitant]
     Active Substance: PANTOPRAZOLE
  12. TRAMADOL. [Concomitant]
     Active Substance: TRAMADOL
  13. ATOVAQUONE. [Concomitant]
     Active Substance: ATOVAQUONE

REACTIONS (2)
  - Oedema [Recovered/Resolved]
  - Dialysis [Not Recovered/Not Resolved]

NARRATIVE: CASE EVENT DATE: 20200528
